FAERS Safety Report 18845184 (Version 1)
Quarter: 2021Q1

REPORT INFORMATION
  Report Type: Report from Study
  Country: US (occurrence: US)
  Receive Date: 20210204
  Receipt Date: 20210204
  Transmission Date: 20210419
  Serious: Yes (Other)
  Sender: FDA-Public Use
  Company Number: US-ASTRAZENECA-2021A022152

PATIENT
  Sex: Male
  Weight: 74.8 kg

DRUGS (3)
  1. KOSELUGO [Suspect]
     Active Substance: SELUMETINIB
     Indication: NEUROFIBROMATOSIS
     Route: 048
     Dates: start: 20200610
  2. IBUPROFEN. [Concomitant]
     Active Substance: IBUPROFEN
  3. ZOFRAN [Concomitant]
     Active Substance: ONDANSETRON HYDROCHLORIDE

REACTIONS (1)
  - Brain neoplasm [Unknown]
